FAERS Safety Report 8872315 (Version 1)
Quarter: 2012Q4

REPORT INFORMATION
  Report Type: 
  Country: US (occurrence: US)
  Receive Date: 20121030
  Receipt Date: 20121030
  Transmission Date: 20130627
  Serious: No
  Sender: FDA-Public Use
  Company Number: US-009507513-1210USA013698

PATIENT
  Sex: Female

DRUGS (3)
  1. VICTRELIS [Suspect]
     Dosage: 4 DF, q8h
     Route: 048
     Dates: start: 2012
  2. CALCIUM (UNSPECIFIED) [Concomitant]
     Dosage: 500 (units unspecified)
  3. TYLENOL [Concomitant]
     Dosage: 325 mg, UNK

REACTIONS (6)
  - Headache [Unknown]
  - Oedema peripheral [Unknown]
  - Pain in extremity [Unknown]
  - Nausea [Unknown]
  - Anaemia [Unknown]
  - Dysgeusia [Unknown]
